FAERS Safety Report 15985396 (Version 1)
Quarter: 2019Q1

REPORT INFORMATION
  Report Type: Spontaneous
  Country: US (occurrence: US)
  Receive Date: 20190220
  Receipt Date: 20190220
  Transmission Date: 20190418
  Serious: Yes (Other)
  Sender: FDA-Public Use
  Company Number: None

PATIENT
  Age: 81 Year
  Sex: Female
  Weight: 61.02 kg

DRUGS (20)
  1. ACETAMINOPHEN. [Concomitant]
     Active Substance: ACETAMINOPHEN
  2. CALCIUM CARBONATE-VITAMIN D [Concomitant]
     Active Substance: CALCIUM CARBONATE\VITAMIN D
  3. CRANBERRY. [Concomitant]
     Active Substance: CRANBERRY
  4. FLUTICASONE PROPIONATE. [Concomitant]
     Active Substance: FLUTICASONE PROPIONATE
  5. SERTRALINE HCL [Concomitant]
     Active Substance: SERTRALINE HYDROCHLORIDE
  6. FERROUS SULFATE. [Concomitant]
     Active Substance: FERROUS SULFATE
  7. PRIMIDONE. [Concomitant]
     Active Substance: PRIMIDONE
  8. PSYLLIUM HUSK. [Concomitant]
     Active Substance: PSYLLIUM HUSK
  9. MAGNESIUM OXIDE. [Concomitant]
     Active Substance: MAGNESIUM OXIDE
  10. POTASSIUM CHLORIDE ER [Concomitant]
     Active Substance: POTASSIUM CHLORIDE
  11. CAPECITABINE. [Suspect]
     Active Substance: CAPECITABINE
     Indication: RECTAL CANCER
     Route: 048
     Dates: start: 20181031
  12. PRAVASTATIN SODIUM. [Concomitant]
     Active Substance: PRAVASTATIN SODIUM
  13. OMEPRAZOLE. [Concomitant]
     Active Substance: OMEPRAZOLE
  14. TRAZODONE [Concomitant]
     Active Substance: TRAZODONE HYDROCHLORIDE
  15. MULTIVITAMIN ADULT [Concomitant]
  16. CAPECITABINE. [Suspect]
     Active Substance: CAPECITABINE
     Indication: LUNG NEOPLASM MALIGNANT
     Route: 048
     Dates: start: 20181031
  17. LOPERAMIDE HCL [Concomitant]
     Active Substance: LOPERAMIDE HYDROCHLORIDE
  18. MEMANTINE HCL [Concomitant]
     Active Substance: MEMANTINE
  19. METOPROLOL SUCCINATE ER [Concomitant]
     Active Substance: METOPROLOL SUCCINATE
  20. ASPIRIN LOW DOSE [Concomitant]
     Active Substance: ASPIRIN

REACTIONS (1)
  - Palmar-plantar erythrodysaesthesia syndrome [None]
